FAERS Safety Report 19191251 (Version 1)
Quarter: 2021Q2

REPORT INFORMATION
  Report Type: Spontaneous
  Country: FR (occurrence: FR)
  Receive Date: 20210428
  Receipt Date: 20210428
  Transmission Date: 20210717
  Serious: Yes (Life-Threatening, Other)
  Sender: FDA-Public Use
  Company Number: FR-INCYTE CORPORATION-2021IN003430

PATIENT

DRUGS (17)
  1. JAKAVI [Suspect]
     Active Substance: RUXOLITINIB
     Indication: GRAFT VERSUS HOST DISEASE
     Dosage: 2 DF, QD (5 MG)
     Route: 065
     Dates: start: 20200715
  2. CYCLOPHOSPHAMIDE. [Suspect]
     Active Substance: CYCLOPHOSPHAMIDE
     Indication: SKIN GRAFT
     Dosage: 3900 MG, QD
     Route: 042
     Dates: start: 20200625
  3. FLUDARABINE [Concomitant]
     Active Substance: FLUDARABINE PHOSPHATE
     Indication: SKIN GRAFT
     Dosage: 56.7 MG, QD
     Route: 042
     Dates: start: 20200618
  4. MYCOPHENOLATE MOFETIL. [Suspect]
     Active Substance: MYCOPHENOLATE MOFETIL
     Dosage: 2000 MG, QD
     Route: 042
     Dates: start: 20200806
  5. JAKAVI [Suspect]
     Active Substance: RUXOLITINIB
     Dosage: 2 DF, QD (15 MG)
     Route: 065
     Dates: start: 20200728
  6. CYCLOPHOSPHAMIDE. [Suspect]
     Active Substance: CYCLOPHOSPHAMIDE
     Dosage: 3900 MG, QD
     Route: 042
     Dates: start: 20200626
  7. MYCOPHENOLATE MOFETIL. [Suspect]
     Active Substance: MYCOPHENOLATE MOFETIL
     Indication: SKIN GRAFT
     Dosage: 2000 MG, QD
     Route: 042
     Dates: start: 20200627, end: 20200806
  8. CICLOSPORIN [Suspect]
     Active Substance: CYCLOSPORINE
     Dosage: 160 MG, QD
     Route: 048
     Dates: start: 20210331
  9. FILGRASTIM [Concomitant]
     Active Substance: FILGRASTIM
     Indication: TOXICITY TO VARIOUS AGENTS
  10. SANDOSTATINE [Suspect]
     Active Substance: OCTREOTIDE ACETATE
     Indication: DIARRHOEA
     Dosage: UNK
     Route: 065
     Dates: start: 20200721, end: 20200803
  11. CICLOSPORIN [Suspect]
     Active Substance: CYCLOSPORINE
     Indication: SKIN GRAFT
     Dosage: 200 MG, QD
     Route: 042
     Dates: start: 20200627, end: 20200827
  12. FLUDARABINE [Concomitant]
     Active Substance: FLUDARABINE PHOSPHATE
     Dosage: 56.7 MG, QD
     Route: 042
     Dates: start: 20200620
  13. CEFEPIME [Concomitant]
     Active Substance: CEFEPIME HYDROCHLORIDE
     Indication: APLASIA
     Dosage: UNK
     Route: 065
     Dates: start: 20200821
  14. ZYVOXID [Concomitant]
     Active Substance: LINEZOLID
     Indication: APLASIA
     Dosage: UNK
     Route: 065
     Dates: start: 20200827
  15. JAKAVI [Suspect]
     Active Substance: RUXOLITINIB
     Dosage: 2 DF, QD (10 MG)
     Route: 065
     Dates: start: 20200718
  16. CICLOSPORIN [Suspect]
     Active Substance: CYCLOSPORINE
     Dosage: 160 MG, QD
     Route: 048
     Dates: start: 20200818, end: 20210331
  17. FILGRASTIM [Concomitant]
     Active Substance: FILGRASTIM
     Indication: NEUTROPENIA
     Dosage: UNK
     Route: 065
     Dates: start: 20200721

REACTIONS (5)
  - Product use in unapproved indication [Unknown]
  - Graft versus host disease [Unknown]
  - Hypogammaglobulinaemia [Unknown]
  - Pancytopenia [Unknown]
  - Human herpesvirus 6 infection reactivation [Recovered/Resolved]

NARRATIVE: CASE EVENT DATE: 20200713
